FAERS Safety Report 7361626-9 (Version None)
Quarter: 2011Q1

REPORT INFORMATION
  Report Type: 
  Country: None (occurrence: None)
  Receive Date: 20110318
  Receipt Date: 20110314
  Transmission Date: 20110831
  Serious: Yes (Other)
  Sender: FDA-Public Use
  Company Number: US-PFIZER INC-2011055787

PATIENT
  Sex: Male

DRUGS (3)
  1. ZYVOX [Suspect]
     Dosage: UNK
  2. MORPHINE [Suspect]
     Dosage: UNK
  3. ATIVAN [Suspect]
     Dosage: UNK

REACTIONS (6)
  - DYSARTHRIA [None]
  - MUSCLE TWITCHING [None]
  - HYPOAESTHESIA [None]
  - DYSPNOEA [None]
  - DEPRESSED LEVEL OF CONSCIOUSNESS [None]
  - ABDOMINAL PAIN UPPER [None]
